FAERS Safety Report 6347593-5 (Version None)
Quarter: 2009Q3

REPORT INFORMATION
  Report Type: 
  Country: None (occurrence: None)
  Receive Date: 20090909
  Receipt Date: 20090909
  Transmission Date: 20100115
  Serious: Yes (Hospitalization)
  Sender: FDA-Public Use
  Company Number: None

PATIENT
  Sex: Male
  Weight: 82.1011 kg

DRUGS (2)
  1. TARCEVA [Suspect]
     Indication: RENAL CELL CARCINOMA
     Dosage: 150MG (1PILL) Q1D ORAL
     Route: 048
     Dates: start: 20090324, end: 20090819
  2. SUTENT [Suspect]
     Dosage: 50MG (1PILL) Q1D ORAL
     Route: 048
     Dates: start: 20090324, end: 20090819

REACTIONS (13)
  - ANURIA [None]
  - CHILLS [None]
  - CONSTIPATION [None]
  - HAEMATOCRIT DECREASED [None]
  - HAEMODIALYSIS [None]
  - HAEMORRHAGE [None]
  - HYDRONEPHROSIS [None]
  - OBSTRUCTION [None]
  - PYREXIA [None]
  - RASH [None]
  - RENAL FAILURE ACUTE [None]
  - SERUM FERRITIN INCREASED [None]
  - URETERIC OBSTRUCTION [None]
